FAERS Safety Report 14717799 (Version 1)
Quarter: 2018Q2

REPORT INFORMATION
  Report Type: Spontaneous
  Country: US (occurrence: US)
  Receive Date: 20180404
  Receipt Date: 20180404
  Transmission Date: 20180711
  Serious: No
  Sender: FDA-Public Use
  Company Number: US-SA-2018SA028787

PATIENT
  Age: 55 Year
  Sex: Male

DRUGS (2)
  1. ULTRAVATE [Concomitant]
     Active Substance: HALOBETASOL PROPIONATE
     Dosage: 0.05%
     Route: 065
  2. DUPIXENT [Suspect]
     Active Substance: DUPILUMAB
     Indication: ECZEMA
     Route: 058
     Dates: start: 20171224

REACTIONS (4)
  - Dry skin [Unknown]
  - Condition aggravated [Unknown]
  - Pruritus [Unknown]
  - Injection site pain [Unknown]

NARRATIVE: CASE EVENT DATE: 201801
